FAERS Safety Report 5507407-X (Version None)
Quarter: 2007Q4

REPORT INFORMATION
  Report Type: 
  Country: None (occurrence: None)
  Receive Date: 20071106
  Receipt Date: 20071026
  Transmission Date: 20080405
  Serious: Yes (Hospitalization)
  Sender: FDA-Public Use
  Company Number: JP-NOVOPROD-268496

PATIENT
  Sex: Female
  Weight: 47 kg

DRUGS (21)
  1. NOVORAPID 30 MIX CHU [Suspect]
     Indication: INSULIN-REQUIRING TYPE II DIABETES MELLITUS
     Dosage: 8 IU, QD
     Route: 058
     Dates: start: 20070905, end: 20071012
  2. NOVORAPID CHU [Suspect]
     Indication: INSULIN-REQUIRING TYPE II DIABETES MELLITUS
     Dosage: UNK, QD
     Route: 058
     Dates: start: 20070827, end: 20070904
  3. NOVOLIN N [Suspect]
     Indication: INSULIN-REQUIRING TYPE II DIABETES MELLITUS
     Dosage: 4 -12 IU
     Route: 058
     Dates: start: 20070827, end: 20070904
  4. LIPITOR [Concomitant]
     Indication: HYPERLIPIDAEMIA
     Dosage: 10 MG, UNK
     Route: 048
     Dates: start: 20060501
  5. ASPIRIN [Concomitant]
     Indication: CEREBRAL INFARCTION
     Dosage: 100 MG, UNK
     Route: 048
     Dates: start: 20060501
  6. TANATRIL [Concomitant]
     Indication: HYPERTENSION
     Dosage: 5 MG, UNK
     Route: 048
     Dates: start: 20060501
  7. ADALAT [Concomitant]
     Indication: HYPERTENSION
     Dosage: 40 MG, UNK
     Route: 048
     Dates: start: 20060501
  8. ADALAT [Concomitant]
     Dates: start: 20070904
  9. ADALAT [Concomitant]
     Dates: end: 20071012
  10. ADALAT [Concomitant]
  11. ADALAT [Concomitant]
     Route: 048
  12. ADALAT [Concomitant]
     Dates: start: 20070904
  13. ADALAT [Concomitant]
     Dates: end: 20071012
  14. ADALAT [Concomitant]
     Dates: start: 20070904
  15. ADALAT [Concomitant]
     Dates: start: 20070904
  16. ADALAT [Concomitant]
     Dates: start: 20070904
  17. ADALAT [Concomitant]
     Dates: start: 20070904
  18. GLYBURIDE [Concomitant]
     Indication: TYPE 2 DIABETES MELLITUS
     Dosage: 5 MG, UNK
     Route: 048
     Dates: end: 20071012
  19. GLYBURIDE [Concomitant]
     Dosage: 5 MG, QD
     Route: 048
     Dates: start: 20070904, end: 20071012
  20. MELBIN                             /00082702/ [Concomitant]
     Indication: TYPE 2 DIABETES MELLITUS
     Dosage: 500 MG, UNK
     Route: 048
     Dates: end: 20071012
  21. MIGLITOL [Concomitant]
     Indication: TYPE 2 DIABETES MELLITUS
     Dosage: 150 MG, UNK
     Route: 048
     Dates: end: 20071012

REACTIONS (2)
  - HEPATIC FUNCTION ABNORMAL [None]
  - HYPOGLYCAEMIA [None]
